FAERS Safety Report 16648694 (Version 1)
Quarter: 2019Q3

REPORT INFORMATION
  Report Type: Report from Study
  Country: None (occurrence: CO)
  Receive Date: 20190730
  Receipt Date: 20190730
  Transmission Date: 20191004
  Serious: Yes (Hospitalization)
  Sender: FDA-Public Use
  Company Number: CO-ABBVIE-19K-036-2872252-00

PATIENT
  Age: 4 Month
  Sex: Female
  Weight: 4 kg

DRUGS (5)
  1. SYNAGIS [Suspect]
     Active Substance: PALIVIZUMAB
     Indication: BRONCHOPULMONARY DYSPLASIA
     Route: 030
     Dates: start: 20190618, end: 20190618
  2. CAPTOPRIL. [Concomitant]
     Active Substance: CAPTOPRIL
     Indication: HEART DISEASE CONGENITAL
     Route: 048
     Dates: start: 201905
  3. HYDROCHLOROTHIAZIDE. [Concomitant]
     Active Substance: HYDROCHLOROTHIAZIDE
     Indication: HEART DISEASE CONGENITAL
     Route: 048
     Dates: start: 201905, end: 20190702
  4. SALBUTAMOL [Suspect]
     Active Substance: ALBUTEROL
     Indication: PNEUMONIA
     Route: 045
     Dates: start: 20190702, end: 20190706
  5. SPIRONOLACTONE. [Concomitant]
     Active Substance: SPIRONOLACTONE
     Indication: HEART DISEASE CONGENITAL
     Route: 048
     Dates: start: 201905

REACTIONS (5)
  - Pneumonia [Recovering/Resolving]
  - Nasal congestion [Recovered/Resolved]
  - Oxygen saturation decreased [Recovering/Resolving]
  - Bronchiolitis [Recovered/Resolved]
  - Tachycardia [Recovering/Resolving]

NARRATIVE: CASE EVENT DATE: 201907
